FAERS Safety Report 18860004 (Version 4)
Quarter: 2021Q1

REPORT INFORMATION
  Report Type: Spontaneous
  Country: JP (occurrence: JP)
  Receive Date: 20210208
  Receipt Date: 20210301
  Transmission Date: 20210420
  Serious: Yes (Other)
  Sender: FDA-Public Use
  Company Number: JP-PFIZER INC-2021118464

PATIENT
  Age: 56 Year
  Sex: Male
  Weight: 80 kg

DRUGS (10)
  1. FOSTOIN [Suspect]
     Active Substance: FOSPHENYTOIN SODIUM
     Indication: STATUS EPILEPTICUS
     Dosage: 675 MG
     Route: 041
  2. LEVETIRACETAM. [Suspect]
     Active Substance: LEVETIRACETAM
     Indication: STATUS EPILEPTICUS
     Dosage: 1000 MG
     Route: 048
  3. NOBELBAR [Suspect]
     Active Substance: PHENOBARBITAL SODIUM
     Indication: STATUS EPILEPTICUS
     Dosage: 500 MG
     Route: 041
  4. PERAMPANEL [Suspect]
     Active Substance: PERAMPANEL
     Indication: STATUS EPILEPTICUS
     Dosage: 4 MG
     Route: 048
  5. LACOSAMIDE. [Suspect]
     Active Substance: LACOSAMIDE
     Indication: STATUS EPILEPTICUS
     Dosage: 100 MG
     Route: 048
  6. PROPOFOL. [Suspect]
     Active Substance: PROPOFOL
     Indication: STATUS EPILEPTICUS
     Dosage: 70 MG, 1 HR
     Route: 065
  7. NORADRENALINE [NOREPINEPHRINE] [Concomitant]
     Active Substance: NOREPINEPHRINE
     Indication: CIRCULATORY COLLAPSE
     Dosage: UNK
     Route: 065
  8. VALPROATE NA [Concomitant]
     Active Substance: VALPROATE SODIUM
     Indication: STATUS EPILEPTICUS
     Dosage: 1800 MG
     Route: 048
  9. PHENYTOIN SODIUM. [Concomitant]
     Active Substance: PHENYTOIN SODIUM
     Indication: STATUS EPILEPTICUS
     Dosage: 600 MG
     Route: 041
  10. THIOPENTAL SODIUM. [Suspect]
     Active Substance: THIOPENTAL SODIUM
     Indication: STATUS EPILEPTICUS
     Dosage: 320 MG/H (1 HR)
     Route: 065

REACTIONS (3)
  - Acute kidney injury [Unknown]
  - Urine sodium increased [Unknown]
  - Polyuria [Unknown]
